FAERS Safety Report 19469860 (Version 1)
Quarter: 2021Q2

REPORT INFORMATION
  Report Type: Spontaneous
  Country: DE (occurrence: DE)
  Receive Date: 20210629
  Receipt Date: 20210629
  Transmission Date: 20210717
  Serious: Yes (Life-Threatening, Hospitalization, Other)
  Sender: FDA-Public Use
  Company Number: DE-AUROBINDO-AUR-APL-2021-027245

PATIENT
  Age: 79 Year
  Sex: Male
  Weight: 76 kg

DRUGS (6)
  1. TILIDINE [Interacting]
     Active Substance: TILIDINE
     Indication: BACK PAIN
     Dosage: UNK (50/4; 4 TABLETS / DAY)
     Route: 065
  2. ATORVASTATIN [Concomitant]
     Active Substance: ATORVASTATIN
     Indication: LIPID METABOLISM DISORDER
     Dosage: 20 MILLIGRAM, ONCE A DAY (DAILY DOSE, EVERY DAYS)
     Route: 065
  3. FALITHROM [Suspect]
     Active Substance: PHENPROCOUMON
     Indication: CORONARY ARTERY DISEASE
     Dosage: 1.5 MILLIGRAM, ONCE A DAY (DAILY DOSE: EVERY DAYS)
     Route: 065
  4. VIGANTOLETTEN [Concomitant]
     Active Substance: CHOLECALCIFEROL
     Indication: OSTEOPOROSIS
     Dosage: 1000 INTERNATIONAL UNIT, ONCE A DAY (DAILY DOSE, EVERY DAYS)
     Route: 065
  5. PANTOPRAZOLE [Concomitant]
     Active Substance: PANTOPRAZOLE
     Indication: GASTROOESOPHAGEAL REFLUX DISEASE
     Dosage: 20 MILLIGRAM, ONCE A DAY DAILY DOSE, EVERY DAYS)
     Route: 065
  6. ALENDRONIC ACID TABLETS [Suspect]
     Active Substance: ALENDRONIC ACID
     Indication: OSTEOPOROSIS
     Dosage: 70 MILLIGRAM, EVERY WEEK (DAILY DOSE)
     Route: 065

REACTIONS (5)
  - Haematuria [Unknown]
  - Melaena [Unknown]
  - Anaemia [Unknown]
  - Haematoma [Unknown]
  - International normalised ratio increased [Unknown]

NARRATIVE: CASE EVENT DATE: 20200423
